FAERS Safety Report 22871108 (Version 2)
Quarter: 2023Q4

REPORT INFORMATION
  Report Type: Spontaneous
  Country: US (occurrence: US)
  Receive Date: 20230828
  Receipt Date: 20231013
  Transmission Date: 20240110
  Serious: No
  Sender: FDA-Public Use
  Company Number: US-ABBVIE-5383375

PATIENT
  Age: 26 Year
  Sex: Female
  Weight: 70 kg

DRUGS (1)
  1. LILETTA [Suspect]
     Active Substance: LEVONORGESTREL
     Indication: Product used for unknown indication
     Dosage: TIME INTERVAL: AS NECESSARY: SLOW RELEASE DELIVERY SYSTEM
     Route: 015

REACTIONS (2)
  - Musculoskeletal stiffness [Unknown]
  - Device expulsion [Unknown]

NARRATIVE: CASE EVENT DATE: 20230720
